FAERS Safety Report 25219447 (Version 1)
Quarter: 2025Q2

REPORT INFORMATION
  Report Type: Spontaneous
  Country: BE (occurrence: BE)
  Receive Date: 20250421
  Receipt Date: 20250421
  Transmission Date: 20250716
  Serious: Yes (Other)
  Sender: Norvium Bioscience
  Company Number: BE-Norvium Bioscience LLC-080054

PATIENT
  Age: 51 Year
  Sex: Female

DRUGS (3)
  1. CARBOPLATIN [Suspect]
     Active Substance: CARBOPLATIN
     Indication: Cervix carcinoma
     Dosage: COMPLETED SIX COURSES OF THERAPY
     Dates: start: 202209, end: 202301
  2. PACLITAXEL [Suspect]
     Active Substance: PACLITAXEL
     Indication: Cervix carcinoma
     Dosage: COMPLETED SIX COURSES OF THERAPY
     Dates: start: 202209, end: 202301
  3. AVASTIN [Concomitant]
     Active Substance: BEVACIZUMAB
     Indication: Cervix carcinoma
     Route: 042

REACTIONS (1)
  - Retinal toxicity [Unknown]
